FAERS Safety Report 9457251 (Version 14)
Quarter: 2014Q1

REPORT INFORMATION
  Report Type: Spontaneous
  Country: US (occurrence: US)
  Receive Date: 20130814
  Receipt Date: 20140128
  Transmission Date: 20141002
  Serious: Yes (Hospitalization, Other)
  Sender: FDA-Public Use
  Company Number: PHEH2006US015716

PATIENT
  Age: 74 Year
  Sex: Female
  Weight: 98.41 kg

DRUGS (18)
  1. AREDIA [Suspect]
     Route: 042
  2. ZOMETA [Suspect]
     Route: 042
  3. NORCO [Concomitant]
  4. DIOVAN [Concomitant]
  5. LIPITOR [Concomitant]
  6. DARVOCET-N [Concomitant]
  7. XANAX [Concomitant]
  8. PROCET [Concomitant]
  9. IBUPROFEN [Concomitant]
  10. ASPIRIN [Concomitant]
  11. MULTIVITAMIN [Concomitant]
  12. MAALOX [Concomitant]
  13. AVALIDE [Concomitant]
  14. NORVASC                                 /DEN/ [Concomitant]
  15. HYDRODIURIL [Concomitant]
  16. PROTONIX ^PHARMACIA^ [Concomitant]
  17. COMPAZINE [Concomitant]
  18. NITROGLYCERIN [Concomitant]
     Dosage: 0.4 MG, UNK

REACTIONS (195)
  - Osteonecrosis of jaw [Unknown]
  - General physical health deterioration [Unknown]
  - Pain [Unknown]
  - Anxiety [Unknown]
  - Decreased interest [Unknown]
  - Myocardial necrosis [Unknown]
  - Catheterisation cardiac [Unknown]
  - Chest pain [Unknown]
  - Granuloma [Unknown]
  - Spondylolisthesis [Unknown]
  - Lumbar spinal stenosis [Unknown]
  - Lumbar radiculopathy [Unknown]
  - Joint swelling [Recovering/Resolving]
  - Hepatic steatosis [Unknown]
  - Back pain [Unknown]
  - Walking aid user [Unknown]
  - Hypoaesthesia [Unknown]
  - Paraesthesia [Unknown]
  - Oesophageal hypomotility [Unknown]
  - Acquired oesophageal web [Unknown]
  - Diverticulum [Unknown]
  - Abdominal pain upper [Unknown]
  - Hiatus hernia [Unknown]
  - Spinal osteoarthritis [Unknown]
  - Abdominal pain [Unknown]
  - Duodenitis [Unknown]
  - Ankle fracture [Unknown]
  - Hypokalaemia [Unknown]
  - Dyspnoea [Unknown]
  - Bone cancer [Unknown]
  - Presyncope [Not Recovered/Not Resolved]
  - Fluid retention [Not Recovered/Not Resolved]
  - Diarrhoea [Unknown]
  - Vomiting [Unknown]
  - Syncope [Unknown]
  - Nausea [Unknown]
  - Abdominal distension [Unknown]
  - Gastrointestinal sounds abnormal [Unknown]
  - Small intestinal obstruction [Unknown]
  - Bursitis [Unknown]
  - Periodontal disease [Unknown]
  - Osteoarthritis [Unknown]
  - Carotid artery stenosis [Unknown]
  - Osteopenia [Unknown]
  - Erythema [Unknown]
  - Swelling [Unknown]
  - Asthenia [Unknown]
  - Gastrooesophageal reflux disease [Unknown]
  - Dysphonia [Unknown]
  - Oropharyngeal pain [Unknown]
  - Musculoskeletal pain [Unknown]
  - Arthropathy [Unknown]
  - Left ventricular dysfunction [Unknown]
  - Ejection fraction decreased [Unknown]
  - Ventricular hypokinesia [Unknown]
  - Mitral valve incompetence [Unknown]
  - Aortic valve sclerosis [Unknown]
  - Pleural effusion [Unknown]
  - Macular degeneration [Unknown]
  - Presbyopia [Unknown]
  - Vitreous floaters [Unknown]
  - Sinusitis [Unknown]
  - Cardiac failure congestive [Unknown]
  - Spinal column stenosis [Unknown]
  - Kyphosis [Unknown]
  - Renal failure [Unknown]
  - Intestinal obstruction [Unknown]
  - Ingrowing nail [Unknown]
  - Onychomycosis [Unknown]
  - Colon adenoma [Unknown]
  - Morton^s neuralgia [Unknown]
  - Tendonitis [Unknown]
  - Gingival swelling [Unknown]
  - Oral discharge [Unknown]
  - Bone loss [Unknown]
  - Osteoradionecrosis [Unknown]
  - Gingival erythema [Unknown]
  - Hypothyroidism [Unknown]
  - Burnout syndrome [Unknown]
  - Insomnia [Unknown]
  - Cardiac murmur [Unknown]
  - Feelings of worthlessness [Unknown]
  - Atrial fibrillation [Unknown]
  - Dysphagia [Unknown]
  - Gait disturbance [Unknown]
  - Urinary incontinence [Unknown]
  - Post laminectomy syndrome [Unknown]
  - Intestinal ischaemia [Unknown]
  - Mitral valve calcification [Unknown]
  - Tricuspid valve incompetence [Unknown]
  - Diverticulitis [Unknown]
  - Breast mass [Unknown]
  - Breast abscess [Unknown]
  - Arteriosclerosis [Unknown]
  - Paget^s disease of nipple [Unknown]
  - Intraductal proliferative breast lesion [Unknown]
  - Breast necrosis [Unknown]
  - Wound [Unknown]
  - Mastitis [Unknown]
  - Blister [Unknown]
  - Periarthritis [Recovering/Resolving]
  - Haemorrhoids [Unknown]
  - Arthritis infective [Unknown]
  - Pneumonia streptococcal [Unknown]
  - Cyst rupture [Unknown]
  - Joint effusion [Unknown]
  - Mastication disorder [Unknown]
  - Osteoporosis [Unknown]
  - Oedema peripheral [Unknown]
  - Polyuria [Unknown]
  - Lymphoedema [Unknown]
  - Oedema mucosal [Unknown]
  - Rhinorrhoea [Unknown]
  - Hypercholesterolaemia [Unknown]
  - Cough [Recovering/Resolving]
  - Nasal congestion [Unknown]
  - Upper-airway cough syndrome [Unknown]
  - Glaucoma [Unknown]
  - Urge incontinence [Unknown]
  - Nocturia [Unknown]
  - Glycogen storage disease type I [Unknown]
  - Carpal tunnel syndrome [Unknown]
  - Metatarsalgia [Recovering/Resolving]
  - Acute leukaemia [Unknown]
  - Pancreatitis [Unknown]
  - Tachycardia [Unknown]
  - Vision blurred [Unknown]
  - Nail discolouration [Unknown]
  - Accident [Unknown]
  - Pain in extremity [Unknown]
  - Onychalgia [Unknown]
  - Nail disorder [Unknown]
  - Exostosis [Unknown]
  - Chronic obstructive pulmonary disease [Unknown]
  - Diabetes mellitus [Unknown]
  - Epistaxis [Unknown]
  - Sacroiliitis [Unknown]
  - Tenosynovitis [Unknown]
  - Peripheral nerve lesion [Unknown]
  - Large intestine polyp [Unknown]
  - Foot fracture [Unknown]
  - Foot deformity [Unknown]
  - Arthralgia [Unknown]
  - Temperature intolerance [Unknown]
  - Dry skin [Unknown]
  - Burning sensation [Unknown]
  - Nervousness [Unknown]
  - Cystitis [Unknown]
  - Gouty arthritis [Unknown]
  - Tenderness [Unknown]
  - Arthritis bacterial [Unknown]
  - Vertebral foraminal stenosis [Unknown]
  - Vitamin D deficiency [Unknown]
  - Bundle branch block left [Unknown]
  - Memory impairment [Unknown]
  - Ataxia [Unknown]
  - Vulval abscess [Unknown]
  - Vulvovaginal candidiasis [Unknown]
  - Gastroenteritis [Unknown]
  - Hypovolaemia [Unknown]
  - Carotid artery occlusion [Unknown]
  - Aortic calcification [Unknown]
  - Aortic arteriosclerosis [Unknown]
  - Ventricular extrasystoles [Unknown]
  - Azotaemia [Unknown]
  - Left atrial dilatation [Unknown]
  - Left ventricular hypertrophy [Unknown]
  - Phlebolith [Unknown]
  - Cardiomyopathy [Unknown]
  - Spinal claudication [Unknown]
  - Cubital tunnel syndrome [Unknown]
  - Blindness [Unknown]
  - Dyslipidaemia [Unknown]
  - Urinary tract infection [Unknown]
  - Haemorrhagic anaemia [Unknown]
  - Pneumonitis [Unknown]
  - Neurogenic bladder [Unknown]
  - Gingival bleeding [Unknown]
  - Sensitivity of teeth [Unknown]
  - Bruxism [Unknown]
  - Tooth fracture [Unknown]
  - Intervertebral disc degeneration [Unknown]
  - Intervertebral disc protrusion [Unknown]
  - Intervertebral disc space narrowing [Unknown]
  - Cardiomegaly [Unknown]
  - Cardiac disorder [Unknown]
  - Aortic valve stenosis [Unknown]
  - Pulmonary hypertension [Unknown]
  - Proteinuria [Unknown]
  - Fall [Unknown]
  - Nephrolithiasis [Unknown]
  - Sensory loss [Unknown]
  - Cellulitis [Recovered/Resolved]
  - Muscular weakness [Unknown]
  - Breast cancer in situ [Unknown]
